FAERS Safety Report 5388793-0 (Version None)
Quarter: 2007Q3

REPORT INFORMATION
  Report Type: 
  Country: None (occurrence: None)
  Receive Date: 20070712
  Receipt Date: 20070629
  Transmission Date: 20080115
  Serious: Yes (Hospitalization)
  Sender: FDA-Public Use
  Company Number: 07-001422

PATIENT
  Age: 17 Year
  Sex: Female
  Weight: 54.4 kg

DRUGS (1)
  1. LOESTRIN 24 FE [Suspect]
     Indication: CONTRACEPTION
     Dosage: 20/1000UG, QD, ORAL
     Route: 048
     Dates: start: 20070527

REACTIONS (2)
  - AMENORRHOEA [None]
  - MENINGITIS [None]
